FAERS Safety Report 17248543 (Version 3)
Quarter: 2020Q1

REPORT INFORMATION
  Report Type: Spontaneous
  Country: FI (occurrence: FI)
  Receive Date: 20200108
  Receipt Date: 20200203
  Transmission Date: 20200409
  Serious: Yes (Other)
  Sender: FDA-Public Use
  Company Number: FI-PFIZER INC-2014012246

PATIENT
  Age: 78 Year
  Sex: Male

DRUGS (9)
  1. SUTENT [Suspect]
     Active Substance: SUNITINIB MALATE
     Dosage: 4 WEEKS AT 37.5 MG AND THEN 2 WEEKS
     Dates: start: 201312, end: 201401
  2. METOPROLOL. [Concomitant]
     Active Substance: METOPROLOL
     Dosage: UNK
  3. SUTENT [Suspect]
     Active Substance: SUNITINIB MALATE
     Indication: CLEAR CELL RENAL CELL CARCINOMA
     Dosage: 37.5 MG, FOR 4 WEEKS/ 2 WEEKS BREAK
     Dates: start: 201311
  4. SUTENT [Suspect]
     Active Substance: SUNITINIB MALATE
     Dosage: 37.5 MG 2W+1W
     Dates: start: 201412
  5. MINI ASPIRIN [Concomitant]
     Dosage: UNK
  6. SUTENT [Suspect]
     Active Substance: SUNITINIB MALATE
     Dosage: 50 MG 2W+1W
     Dates: start: 201402
  7. SUTENT [Suspect]
     Active Substance: SUNITINIB MALATE
     Dosage: 50 MG 4W+2W
     Dates: start: 201409
  8. SALAZOPYRIN [Concomitant]
     Active Substance: SULFASALAZINE
     Indication: RHEUMATOID ARTHRITIS
     Dosage: UNK
  9. TREXAN [Concomitant]
     Active Substance: METHOTREXATE
     Indication: RHEUMATOID ARTHRITIS
     Dosage: UNK

REACTIONS (6)
  - Neutropenia [Unknown]
  - Neutrophil count decreased [Recovered/Resolved]
  - Blood pressure increased [Unknown]
  - Inguinal hernia [Unknown]
  - Rash [Unknown]
  - Diarrhoea [Unknown]
